FAERS Safety Report 10872801 (Version 1)
Quarter: 2015Q1

REPORT INFORMATION
  Report Type: Spontaneous
  Country: US (occurrence: US)
  Receive Date: 20150227
  Receipt Date: 20150227
  Transmission Date: 20150721
  Serious: No
  Sender: FDA-Public Use
  Company Number: US-ASTRAZENECA-2015SE13056

PATIENT
  Sex: Female
  Weight: 91 kg

DRUGS (22)
  1. LYRICA [Concomitant]
     Active Substance: PREGABALIN
     Indication: NEURALGIA
     Route: 048
     Dates: start: 201408
  2. ASPIRIN. [Concomitant]
     Active Substance: ASPIRIN
     Indication: ADJUVANT THERAPY
     Route: 065
  3. SIMVASTATIN. [Concomitant]
     Active Substance: SIMVASTATIN
     Indication: BLOOD CHOLESTEROL INCREASED
     Route: 065
  4. ZOLOFT [Concomitant]
     Active Substance: SERTRALINE HYDROCHLORIDE
     Dates: start: 201309
  5. ZOLOFT [Concomitant]
     Active Substance: SERTRALINE HYDROCHLORIDE
  6. ARIMIDEX [Suspect]
     Active Substance: ANASTROZOLE
     Route: 048
     Dates: end: 201303
  7. MIRTAZEPINE [Concomitant]
     Indication: MOOD ALTERED
     Dosage: 7.5 MG, DAILY AT BEDTIME
  8. MIRTAZEPINE [Concomitant]
     Indication: SLEEP DISORDER
     Dosage: ONE IN THE AFTERNOON AND 2 LAST NIGHT
  9. FENTANYL. [Concomitant]
     Active Substance: FENTANYL
     Route: 065
  10. STEROIDS [Concomitant]
     Active Substance: UNSPECIFIED INGREDIENT
     Dosage: EVETY OTHER MONTH, 22 SHOTS AT A TIME
     Route: 065
  11. LYRICA [Concomitant]
     Active Substance: PREGABALIN
     Indication: NEURALGIA
     Route: 048
  12. LYRICA [Concomitant]
     Active Substance: PREGABALIN
     Indication: NEURALGIA
     Route: 048
  13. MIRTAZEPINE [Concomitant]
     Indication: MOOD ALTERED
     Dosage: 15 MG, 2-3 DAILY
     Route: 065
  14. OXYCODONE [Concomitant]
     Active Substance: OXYCODONE
     Indication: BACK PAIN
     Dosage: 5 MG TABLETS, 4-5 PER DAY
     Route: 048
  15. ZOLOFT [Concomitant]
     Active Substance: SERTRALINE HYDROCHLORIDE
  16. VALIUM [Concomitant]
     Active Substance: DIAZEPAM
     Indication: ANXIETY
     Route: 065
  17. MIRTAZEPINE [Concomitant]
     Indication: SLEEP DISORDER
     Dosage: 7.5 MG, DAILY AT BEDTIME
  18. LYRICA [Concomitant]
     Active Substance: PREGABALIN
     Indication: NEURALGIA
     Route: 048
  19. LYRICA [Concomitant]
     Active Substance: PREGABALIN
     Indication: NEURALGIA
     Route: 048
  20. METHADONE [Concomitant]
     Active Substance: METHADONE HYDROCHLORIDE
     Dates: end: 20130928
  21. MIRTAZEPINE [Concomitant]
     Indication: SLEEP DISORDER
     Dosage: 15 MG, 2-3 DAILY
     Route: 065
  22. MIRTAZEPINE [Concomitant]
     Indication: MOOD ALTERED
     Dosage: ONE IN THE AFTERNOON AND 2 LAST NIGHT

REACTIONS (3)
  - Feeling abnormal [Unknown]
  - Depression [Not Recovered/Not Resolved]
  - Anxiety [Not Recovered/Not Resolved]
